FAERS Safety Report 4627842-1 (Version None)
Quarter: 2005Q2

REPORT INFORMATION
  Report Type: 
  Country: None (occurrence: None)
  Receive Date: 20050401
  Receipt Date: 20040318
  Transmission Date: 20051028
  Serious: Yes (Hospitalization)
  Sender: FDA-Public Use
  Company Number: 7744

PATIENT
  Age: 51 Year
  Sex: Female

DRUGS (2)
  1. LEUCOVORIN CALCIUM [Suspect]
     Indication: COLON CANCER
     Dosage: PO
     Route: 048
  2. TEGAFUR URACIL [Suspect]
     Indication: COLON CANCER
     Dosage: PO
     Route: 048

REACTIONS (1)
  - DIARRHOEA [None]
